FAERS Safety Report 5677853-2 (Version None)
Quarter: 2008Q1

REPORT INFORMATION
  Report Type: 
  Country: None (occurrence: None)
  Receive Date: 20080318
  Receipt Date: 20080305
  Transmission Date: 20080703
  Serious: Yes (Hospitalization)
  Sender: FDA-Public Use
  Company Number: GXKR2008US02326

PATIENT
  Age: 60 Year
  Sex: Male

DRUGS (4)
  1. PYRIDOSTIGMINE (NGX)(PYRIDOSTIGMINE) UNKNOWN [Suspect]
     Indication: MYASTHENIA GRAVIS
     Dosage: 60 MG, QID
  2. PREDNISONE TAB [Concomitant]
  3. AZATHIOPRINE [Concomitant]
  4. PLASMAPHERESIS [Concomitant]

REACTIONS (9)
  - ATRIOVENTRICULAR BLOCK COMPLETE [None]
  - ATRIOVENTRICULAR BLOCK SECOND DEGREE [None]
  - BRADYCARDIA [None]
  - DIZZINESS [None]
  - FATIGUE [None]
  - MUSCULAR WEAKNESS [None]
  - SYNCOPE [None]
  - VENTRICULAR ARRHYTHMIA [None]
  - VENTRICULAR ASYSTOLE [None]
